FAERS Safety Report 24374498 (Version 1)
Quarter: 2024Q3

REPORT INFORMATION
  Report Type: Spontaneous
  Country: CN (occurrence: CN)
  Receive Date: 20240927
  Receipt Date: 20240927
  Transmission Date: 20241017
  Serious: Yes (Life-Threatening, Hospitalization, Other)
  Sender: SANOFI AVENTIS
  Company Number: CN-SA-2024SA277100

PATIENT
  Age: 80 Year
  Sex: Male
  Weight: 66 kg

DRUGS (2)
  1. DUPIXENT [Suspect]
     Active Substance: DUPILUMAB
     Indication: Dermatitis atopic
     Dosage: 600 MG, 1X
     Route: 058
     Dates: start: 20240912
  2. DUPIXENT [Suspect]
     Active Substance: DUPILUMAB
     Dosage: 300 MG, QOW
     Route: 058
     Dates: start: 20240912

REACTIONS (13)
  - Pyrexia [Unknown]
  - Fatigue [Unknown]
  - Rash [Unknown]
  - Skin discolouration [Unknown]
  - Tongue discolouration [Unknown]
  - Platelet count decreased [Unknown]
  - Splenomegaly [Unknown]
  - Hepatic function abnormal [Unknown]
  - Loss of consciousness [Unknown]
  - Inflammatory marker increased [Unknown]
  - Multiple organ dysfunction syndrome [Unknown]
  - Oral herpes [Unknown]
  - Hyperpyrexia [Unknown]

NARRATIVE: CASE EVENT DATE: 20240914
